FAERS Safety Report 15291585 (Version 1)
Quarter: 2018Q3

REPORT INFORMATION
  Report Type: Spontaneous
  Country: GB (occurrence: GB)
  Receive Date: 20180817
  Receipt Date: 20180817
  Transmission Date: 20181010
  Serious: Yes (Other)
  Sender: FDA-Public Use
  Company Number: GB-TEVA-2018-GB-943737

PATIENT
  Age: 27 Year
  Sex: Female
  Weight: 59 kg

DRUGS (4)
  1. AMOXICILLIN. [Suspect]
     Active Substance: AMOXICILLIN
     Route: 065
     Dates: start: 20180713
  2. NORIDAY [Concomitant]
     Active Substance: MESTRANOL\NORETHINDRONE
     Dosage: MINI PILL ? TAKE ONE AT THE SAME TIME EV...
     Dates: start: 20180709
  3. MICROGYNON [Concomitant]
     Active Substance: ETHINYL ESTRADIOL\LEVONORGESTREL ACETATE
     Dosage: AS DIRECTED
     Dates: start: 20170811
  4. ERYTHROMYCIN. [Concomitant]
     Active Substance: ERYTHROMYCIN
     Dosage: 2 DOSAGE FORMS DAILY; APPLY
     Dates: start: 20171213

REACTIONS (2)
  - Malaise [Recovered/Resolved]
  - Abdominal discomfort [Unknown]

NARRATIVE: CASE EVENT DATE: 20180713
